APPROVED DRUG PRODUCT: PARICALCITOL
Active Ingredient: PARICALCITOL
Strength: 0.01MG/2ML (0.005MG/ML)
Dosage Form/Route: SOLUTION;INTRAVENOUS
Application: N205917 | Product #003
Applicant: HIKMA PHARMACEUTICALS CO LTD
Approved: Nov 18, 2014 | RLD: No | RS: No | Type: DISCN